FAERS Safety Report 7569229-8 (Version None)
Quarter: 2011Q2

REPORT INFORMATION
  Report Type: 
  Country: None (occurrence: None)
  Receive Date: 20110623
  Receipt Date: 20110615
  Transmission Date: 20111010
  Serious: Yes (Other)
  Sender: FDA-Public Use
  Company Number: PHHY2010FR89080

PATIENT
  Age: 25 Year
  Sex: Female

DRUGS (3)
  1. EXTAVIA [Suspect]
     Indication: MULTIPLE SCLEROSIS
     Dosage: 0.50 ML, UNK
     Route: 058
     Dates: start: 20101210, end: 20110201
  2. EXTAVIA [Suspect]
     Dosage: 0.75 ML, QOD
     Route: 058
  3. EXTAVIA [Suspect]
     Dosage: 1 ML, UNK
     Route: 058

REACTIONS (9)
  - ASTHMA [None]
  - HEADACHE [None]
  - INFLUENZA LIKE ILLNESS [None]
  - MYALGIA [None]
  - CHEST DISCOMFORT [None]
  - INJECTION SITE ERYTHEMA [None]
  - PYREXIA [None]
  - INJECTION SITE PRURITUS [None]
  - DYSPNOEA [None]
